FAERS Safety Report 7562199-8 (Version None)
Quarter: 2011Q2

REPORT INFORMATION
  Report Type: 
  Country: None (occurrence: None)
  Receive Date: 20110614
  Receipt Date: 20110606
  Transmission Date: 20111010
  Serious: Yes (Other)
  Sender: FDA-Public Use
  Company Number: UKP11000055

PATIENT
  Age: 56 Year
  Sex: Female

DRUGS (1)
  1. ASACOL [Suspect]
     Indication: PROCTITIS ULCERATIVE
     Dosage: 1.2G, 3/DAY, ORAL
     Route: 048
     Dates: start: 20100101, end: 20110101

REACTIONS (3)
  - THROMBOCYTOPENIA [None]
  - PURPURA [None]
  - CONTUSION [None]
